FAERS Safety Report 19962912 (Version 1)
Quarter: 2021Q4

REPORT INFORMATION
  Report Type: Spontaneous
  Country: US (occurrence: US)
  Receive Date: 20211017
  Receipt Date: 20211017
  Transmission Date: 20220303
  Serious: Yes (Hospitalization)
  Sender: FDA-Public Use
  Company Number: None

PATIENT
  Age: 31 Year
  Sex: Male
  Weight: 103.5 kg

DRUGS (4)
  1. .DELTA.8-TETRAHYDROCANNABINOL\HERBALS [Suspect]
     Active Substance: .DELTA.8-TETRAHYDROCANNABINOL\HERBALS
     Dosage: ?          QUANTITY:.5 RING;OTHER FREQUENCY:ONCE;
     Dates: start: 20210926, end: 20210926
  2. SYRTRLENE [Concomitant]
  3. ADDERALL [Concomitant]
     Active Substance: AMPHETAMINE ASPARTATE\AMPHETAMINE SULFATE\DEXTROAMPHETAMINE SACCHARATE\DEXTROAMPHETAMINE SULFATE
  4. ZYRTEC [Concomitant]
     Active Substance: CETIRIZINE HYDROCHLORIDE

REACTIONS (5)
  - Dyspnoea [None]
  - Heart rate increased [None]
  - Dizziness [None]
  - Thinking abnormal [None]
  - Nausea [None]

NARRATIVE: CASE EVENT DATE: 20210926
